FAERS Safety Report 15524683 (Version 1)
Quarter: 2018Q4

REPORT INFORMATION
  Report Type: Spontaneous
  Country: US (occurrence: US)
  Receive Date: 20181019
  Receipt Date: 20181019
  Transmission Date: 20190205
  Serious: Yes (Other)
  Sender: FDA-Public Use
  Company Number: US-ASTRAZENECA-2018SF35309

PATIENT
  Sex: Male

DRUGS (7)
  1. TRILEPTAL [Concomitant]
     Active Substance: OXCARBAZEPINE
  2. DILANTIN RX [Concomitant]
  3. KEPPRA RX [Concomitant]
  4. NEXIUM [Suspect]
     Active Substance: ESOMEPRAZOLE MAGNESIUM
     Indication: HIATUS HERNIA
     Route: 048
     Dates: start: 2001
  5. VENTOLIN RX [Concomitant]
  6. NEXIUM [Suspect]
     Active Substance: ESOMEPRAZOLE MAGNESIUM
     Indication: HIATUS HERNIA
     Dosage: GENERIC
     Route: 065
  7. PRILOSEC [Suspect]
     Active Substance: OMEPRAZOLE MAGNESIUM
     Route: 048

REACTIONS (27)
  - Choking [Unknown]
  - Sleep disorder [Unknown]
  - Product use in unapproved indication [Unknown]
  - Myocardial infarction [Unknown]
  - Abdominal distension [Not Recovered/Not Resolved]
  - Insurance issue [Unknown]
  - Weight fluctuation [Unknown]
  - Weight increased [Unknown]
  - Hernia [Unknown]
  - Circumstance or information capable of leading to medication error [Unknown]
  - Gastrooesophageal reflux disease [Not Recovered/Not Resolved]
  - Back disorder [Not Recovered/Not Resolved]
  - Movement disorder [Not Recovered/Not Resolved]
  - Vision blurred [Not Recovered/Not Resolved]
  - Cerebrovascular accident [Unknown]
  - Gastrointestinal disorder [Not Recovered/Not Resolved]
  - Cardiac failure congestive [Unknown]
  - Eye disorder [Not Recovered/Not Resolved]
  - Fatigue [Unknown]
  - Cough [Unknown]
  - Diarrhoea [Unknown]
  - Product physical issue [Unknown]
  - Fall [Unknown]
  - Off label use [Unknown]
  - Regurgitation [Not Recovered/Not Resolved]
  - Dyspepsia [Not Recovered/Not Resolved]
  - Drug ineffective [Unknown]
